FAERS Safety Report 9704512 (Version 2)
Quarter: 2013Q4

REPORT INFORMATION
  Report Type: Report from Study
  Country: DE (occurrence: DE)
  Receive Date: 20131122
  Receipt Date: 20131210
  Transmission Date: 20140711
  Serious: Yes (Death)
  Sender: FDA-Public Use
  Company Number: DE-ROCHE-1305004

PATIENT
  Age: 87 Year
  Sex: Female

DRUGS (10)
  1. RANIBIZUMAB [Suspect]
     Indication: VISUAL IMPAIRMENT
     Route: 050
     Dates: start: 20110323
  2. RANIBIZUMAB [Suspect]
     Route: 050
     Dates: start: 20130131
  3. RANIBIZUMAB [Suspect]
     Route: 050
     Dates: start: 20130228
  4. RANIBIZUMAB [Suspect]
     Route: 050
     Dates: start: 20130411
  5. RANIBIZUMAB [Suspect]
     Route: 050
     Dates: start: 20130610
  6. RANIBIZUMAB [Suspect]
     Route: 050
     Dates: start: 20130708
  7. TRUSOPT [Concomitant]
     Dosage: EYE DROP
     Route: 065
     Dates: start: 20121207
  8. TRUSOPT [Concomitant]
     Dosage: EYE DROPS
     Route: 065
     Dates: start: 20121213
  9. ALPHAGAN [Concomitant]
     Dosage: EYE DROP
     Route: 065
     Dates: start: 20121213
  10. ALPHAGAN [Concomitant]
     Dosage: EYE DROPS
     Route: 065
     Dates: start: 20121207

REACTIONS (3)
  - Death [Fatal]
  - Retinal detachment [Unknown]
  - Angiogram abnormal [Unknown]
